FAERS Safety Report 14447027 (Version 1)
Quarter: 2018Q1

REPORT INFORMATION
  Report Type: Spontaneous
  Country: US (occurrence: US)
  Receive Date: 20180126
  Receipt Date: 20180126
  Transmission Date: 20180509
  Serious: No
  Sender: FDA-Public Use
  Company Number: US-TEVA-2017-US-842238

PATIENT

DRUGS (1)
  1. AMIKACIN [Suspect]
     Active Substance: AMIKACIN
     Dosage: DOSE STRENGTH:  250 MG/ML, 500 MG
     Route: 037

REACTIONS (1)
  - Drug prescribing error [Unknown]

NARRATIVE: CASE EVENT DATE: 20171227
